FAERS Safety Report 12915935 (Version 2)
Quarter: 2017Q1

REPORT INFORMATION
  Report Type: Spontaneous
  Country: US (occurrence: US)
  Receive Date: 20161107
  Receipt Date: 20170213
  Transmission Date: 20170428
  Serious: No
  Sender: FDA-Public Use
  Company Number: US-009507513-1610USA012411

PATIENT
  Age: 67 Year
  Sex: Male

DRUGS (2)
  1. ASMANEX HFA [Concomitant]
     Active Substance: MOMETASONE FUROATE
  2. DULERA [Suspect]
     Active Substance: FORMOTEROL FUMARATE DIHYDRATE\MOMETASONE FUROATE
     Indication: CHRONIC OBSTRUCTIVE PULMONARY DISEASE
     Dosage: 2 PUFFS, TWICE DAILY (TWO PUFFS IN THE MORNING AND TWO PUFFS BEFOR BED).
     Route: 055
     Dates: start: 2013

REACTIONS (4)
  - Secretion discharge [Not Recovered/Not Resolved]
  - Drug effect decreased [Not Recovered/Not Resolved]
  - Dry mouth [Not Recovered/Not Resolved]
  - Cough [Not Recovered/Not Resolved]

NARRATIVE: CASE EVENT DATE: 20170104
